FAERS Safety Report 10868134 (Version 1)
Quarter: 2015Q1

REPORT INFORMATION
  Report Type: Spontaneous
  Country: US (occurrence: US)
  Receive Date: 20150225
  Receipt Date: 20150225
  Transmission Date: 20150721
  Serious: No
  Sender: FDA-Public Use
  Company Number: US-LUNDBECK-DKLU1108502

PATIENT
  Age: 90 Year
  Sex: Female

DRUGS (2)
  1. NORTHERA [Suspect]
     Active Substance: DROXIDOPA
     Indication: HYPOTENSION
     Route: 065
     Dates: start: 20150131
  2. NORTHERA [Suspect]
     Active Substance: DROXIDOPA
     Indication: DIZZINESS
     Route: 065
     Dates: start: 20150131

REACTIONS (1)
  - Blood pressure increased [Recovered/Resolved]

NARRATIVE: CASE EVENT DATE: 20150131
